FAERS Safety Report 15255154 (Version 3)
Quarter: 2018Q3

REPORT INFORMATION
  Report Type: Report from Study
  Country: US (occurrence: US)
  Receive Date: 20180808
  Receipt Date: 20180829
  Transmission Date: 20181010
  Serious: Yes (Hospitalization, Other)
  Sender: FDA-Public Use
  Company Number: US-TESARO, INC-US-2018TSO03872

PATIENT
  Age: 60 Year
  Sex: Female

DRUGS (2)
  1. ZEJULA [Suspect]
     Active Substance: NIRAPARIB
     Indication: B-CELL LYMPHOMA STAGE I
     Dosage: 200 MG, QD
     Route: 048
     Dates: start: 20180804
  2. ZEJULA [Suspect]
     Active Substance: NIRAPARIB
     Indication: ADRENAL GLAND CANCER
     Dosage: 200 MG, QD
     Route: 048
     Dates: start: 201805

REACTIONS (18)
  - Diarrhoea [Unknown]
  - Intentional underdose [Not Recovered/Not Resolved]
  - Fatigue [Not Recovered/Not Resolved]
  - Adrenal insufficiency [Unknown]
  - Ear discomfort [Unknown]
  - Drug dose omission [Recovered/Resolved]
  - Product use in unapproved indication [Not Recovered/Not Resolved]
  - Decreased activity [Unknown]
  - Nausea [Unknown]
  - Sleep disorder [Not Recovered/Not Resolved]
  - Nightmare [Not Recovered/Not Resolved]
  - Blood pressure decreased [Not Recovered/Not Resolved]
  - Treatment noncompliance [Unknown]
  - Decreased appetite [Not Recovered/Not Resolved]
  - Pain in extremity [Unknown]
  - Dehydration [Not Recovered/Not Resolved]
  - Thrombosis [Unknown]
  - Odynophagia [Unknown]

NARRATIVE: CASE EVENT DATE: 201805
